FAERS Safety Report 5515712-6 (Version None)
Quarter: 2007Q4

REPORT INFORMATION
  Report Type: 
  Country: None (occurrence: None)
  Receive Date: 20071113
  Receipt Date: 20070907
  Transmission Date: 20080405
  Serious: No
  Sender: FDA-Public Use
  Company Number: A0679713A

PATIENT
  Age: 70 Year
  Sex: Male

DRUGS (3)
  1. COREG [Suspect]
     Dosage: 25MG TWICE PER DAY
     Route: 048
  2. COREG CR [Suspect]
     Route: 048
  3. ENALAPRIL MALEATE [Concomitant]

REACTIONS (2)
  - DRUG INEFFECTIVE [None]
  - HYPOTENSION [None]
